FAERS Safety Report 8839266 (Version 1)
Quarter: 2012Q4

REPORT INFORMATION
  Report Type: Spontaneous
  Country: US (occurrence: None)
  Receive Date: 20121011
  Receipt Date: 20121011
  Transmission Date: 20130627
  Serious: Yes (Hospitalization)
  Sender: FDA-Public Use
  Company Number: None

PATIENT
  Age: 76 Year
  Sex: Female

DRUGS (2)
  1. TARCEVA [Suspect]
     Indication: LUNG CANCER STAGE IV
     Dates: start: 20120828
  2. DOVITINIB [Suspect]
     Dosage: 5 days on 2 days off
     Dates: start: 20120911

REACTIONS (4)
  - Atrial flutter [None]
  - Heart rate increased [None]
  - Pleural effusion [None]
  - Pulmonary embolism [None]
